FAERS Safety Report 5446575-5 (Version None)
Quarter: 2007Q3

REPORT INFORMATION
  Report Type: 
  Country: None (occurrence: None)
  Receive Date: 20070907
  Receipt Date: 20070828
  Transmission Date: 20080115
  Serious: Yes (Other)
  Sender: FDA-Public Use
  Company Number: JP-PFIZER INC-2007028798

PATIENT
  Sex: Male
  Weight: 68 kg

DRUGS (7)
  1. CABERGOLINE [Suspect]
     Indication: PARKINSON'S DISEASE
     Dosage: DAILY DOSE:2MG
     Route: 048
     Dates: start: 20031004, end: 20060807
  2. PERMAX [Suspect]
     Indication: PARKINSON'S DISEASE
     Dosage: DAILY DOSE:1500MCG
     Route: 048
  3. AKINETON [Concomitant]
     Route: 048
  4. ZANTAC 150 [Concomitant]
     Route: 048
  5. EC DOPARL [Concomitant]
     Route: 048
  6. SYMMETREL [Concomitant]
     Route: 048
  7. DOPS [Concomitant]
     Route: 048

REACTIONS (1)
  - AORTIC VALVE INCOMPETENCE [None]
